FAERS Safety Report 21786080 (Version 2)
Quarter: 2023Q1

REPORT INFORMATION
  Report Type: Report from Study
  Country: US (occurrence: US)
  Receive Date: 20221228
  Receipt Date: 20230317
  Transmission Date: 20230418
  Serious: No
  Sender: FDA-Public Use
  Company Number: US-ABBVIE-4203780

PATIENT
  Age: 44 Year
  Sex: Male

DRUGS (2)
  1. RINVOQ [Suspect]
     Active Substance: UPADACITINIB
     Indication: Colitis ulcerative
     Route: 048
  2. RINVOQ [Suspect]
     Active Substance: UPADACITINIB
     Indication: Colitis ulcerative
     Dosage: FORM STRENGTH: 30 MG
     Route: 048
     Dates: start: 202209

REACTIONS (6)
  - Chills [Unknown]
  - Pharyngitis [Recovered/Resolved]
  - Oropharyngeal pain [Recovering/Resolving]
  - Throat irritation [Unknown]
  - Oral herpes [Unknown]
  - Pain [Unknown]

NARRATIVE: CASE EVENT DATE: 20230101
